FAERS Safety Report 5309897-4 (Version None)
Quarter: 2007Q2

REPORT INFORMATION
  Report Type: 
  Country: None (occurrence: None)
  Receive Date: 20070427
  Receipt Date: 20070423
  Transmission Date: 20071010
  Serious: Yes (Other)
  Sender: FDA-Public Use
  Company Number: FR-AVENTIS-200710237FR

PATIENT
  Age: 50 Year
  Sex: Female

DRUGS (6)
  1. CALSYN                             /00371903/ [Suspect]
     Indication: COMPLEX REGIONAL PAIN SYNDROME
     Route: 030
     Dates: start: 20070105, end: 20070109
  2. SALAZOPYRINE [Concomitant]
     Indication: CROHN'S DISEASE
     Route: 048
  3. PROZAC [Concomitant]
     Indication: DEPRESSION
     Route: 048
  4. TEMESTA                            /00273201/ [Concomitant]
     Indication: DEPRESSION
     Route: 048
  5. XANAX [Concomitant]
     Indication: DEPRESSION
     Route: 048
  6. LIPANTHYL [Concomitant]
     Indication: HYPERLIPIDAEMIA
     Route: 048

REACTIONS (11)
  - ABDOMINAL DISTENSION [None]
  - ABDOMINAL PAIN [None]
  - C-REACTIVE PROTEIN INCREASED [None]
  - CONSTIPATION [None]
  - CROHN'S DISEASE [None]
  - DIARRHOEA HAEMORRHAGIC [None]
  - FLATULENCE [None]
  - GAMMA-GLUTAMYLTRANSFERASE INCREASED [None]
  - HYPERTRIGLYCERIDAEMIA [None]
  - RECTAL HAEMORRHAGE [None]
  - RED BLOOD CELL COUNT DECREASED [None]
